FAERS Safety Report 8457638 (Version 3)
Quarter: 2019Q4

REPORT INFORMATION
  Report Type: Spontaneous
  Country: US (occurrence: US)
  Receive Date: 20120314
  Receipt Date: 20191219
  Transmission Date: 20200122
  Serious: Yes (Other)
  Sender: FDA-Public Use
  Company Number: US-UCBSA-023158

PATIENT
  Age: 18 Year
  Sex: Female
  Weight: 61.23 kg

DRUGS (4)
  1. CIPROFLOXACIN. [Concomitant]
     Active Substance: CIPROFLOXACIN
     Indication: CROHN^S DISEASE
     Dosage: 500 MG, 2X/DAY (BID)
     Route: 048
     Dates: start: 201011
  2. CIMZIA [Suspect]
     Active Substance: CERTOLIZUMAB PEGOL
     Indication: CROHN^S DISEASE
     Dosage: FREQUENCY: 0,2 + 4
     Route: 058
     Dates: start: 20101117
  3. CIMZIA [Suspect]
     Active Substance: CERTOLIZUMAB PEGOL
     Dosage: 400 MG, EV 3 WEEKS
     Route: 058
     Dates: start: 201112, end: 201203
  4. IRON [Concomitant]
     Active Substance: IRON
     Indication: ANAEMIA
     Dosage: UNK UNK, 2X/DAY (BID)
     Route: 048
     Dates: start: 201008

REACTIONS (3)
  - Crohn^s disease [Recovered/Resolved]
  - Psoriasis [Recovering/Resolving]
  - Injection site nodule [Not Recovered/Not Resolved]

NARRATIVE: CASE EVENT DATE: 20101202
